FAERS Safety Report 8076367-2 (Version None)
Quarter: 2012Q1

REPORT INFORMATION
  Report Type: 
  Country: None (occurrence: None)
  Receive Date: 20120127
  Receipt Date: 20120122
  Transmission Date: 20120608
  Serious: Yes (Death)
  Sender: FDA-Public Use
  Company Number: DE-ROCHE-1033098

PATIENT
  Age: 66 Year
  Weight: 54 kg

DRUGS (3)
  1. XELODA [Suspect]
     Indication: COLORECTAL CANCER
     Route: 048
     Dates: start: 20100621, end: 20110105
  2. IRINOTECAN HCL [Concomitant]
     Dates: start: 20101208, end: 20110105
  3. MARCUMAR [Concomitant]

REACTIONS (4)
  - RED BLOOD CELL COUNT DECREASED [None]
  - MUCOSAL INFLAMMATION [None]
  - WEIGHT DECREASED [None]
  - GENERAL PHYSICAL HEALTH DETERIORATION [None]
